FAERS Safety Report 6518833-4 (Version None)
Quarter: 2009Q4

REPORT INFORMATION
  Report Type: 
  Country: None (occurrence: None)
  Receive Date: 20091228
  Receipt Date: 20091214
  Transmission Date: 20100525
  Serious: Yes (Hospitalization)
  Sender: FDA-Public Use
  Company Number: NO-ASTRAZENECA-2009SE33110

PATIENT
  Age: 73 Year
  Sex: Female

DRUGS (38)
  1. NEXIUM [Suspect]
     Route: 040
     Dates: start: 20090913, end: 20090923
  2. AMINOPHYLLIN [Suspect]
     Indication: OBSTRUCTIVE AIRWAYS DISORDER
     Dosage: DOSE INCREASED TO  6 MICROGRAM/KG/MINUTE FROM 20090915.
     Route: 041
     Dates: start: 20090910, end: 20090918
  3. CAPOTEN [Suspect]
     Route: 051
     Dates: start: 20090918, end: 20090919
  4. CAPOTEN [Suspect]
     Dosage: 12,5 MG ONCE, 6,5 MG ONCE.
     Route: 051
     Dates: start: 20090610
  5. BRICANYL [Suspect]
     Indication: OBSTRUCTIVE AIRWAYS DISORDER
     Dosage: INFUSION
     Route: 041
     Dates: start: 20090909, end: 20090924
  6. PERFALGAN [Concomitant]
     Dosage: ALSO 1 DOSE GIVEN 20090912.
     Dates: start: 20090919, end: 20090921
  7. CATAPRESAN [Concomitant]
     Dates: start: 20090918, end: 20090919
  8. PROPOFOL [Concomitant]
     Dosage: ALSO SOME GIVEN 20090919.
     Dates: start: 20090908, end: 20090912
  9. LEVOTHYROXINE SODIUM [Concomitant]
     Dates: start: 20090913, end: 20090925
  10. ULTIVA [Concomitant]
     Dates: start: 20090916, end: 20090919
  11. ADALAT [Concomitant]
     Dates: start: 20090918, end: 20090918
  12. POTASSIUM CHLORIDE [Concomitant]
     Dosage: ALSO USED 20090920-21.
     Dates: start: 20090909, end: 20090918
  13. POTASSIUM CHLORIDE [Concomitant]
     Dates: start: 20090920, end: 20090921
  14. EFEDRIN [Concomitant]
     Dates: start: 20090920, end: 20090920
  15. DALTEPARIN [Concomitant]
     Dates: start: 20090908, end: 20090909
  16. DALTEPARIN [Concomitant]
     Dates: start: 20090912, end: 20090925
  17. MERONEM [Concomitant]
     Dates: start: 20090918, end: 20090924
  18. FUROSEMID [Concomitant]
     Route: 042
     Dates: start: 20090910, end: 20090925
  19. ACETYLCYSTEINE [Concomitant]
     Dates: start: 20090908, end: 20090921
  20. ACETAZOLAMIDE [Concomitant]
     Dates: start: 20090923, end: 20090925
  21. CEFOTAXIME [Concomitant]
     Dates: start: 20090916, end: 20090918
  22. ERYTHROMYCIN [Concomitant]
     Dates: start: 20090910, end: 20090914
  23. LACTULOSE [Concomitant]
     Dates: start: 20090909, end: 20090920
  24. DORMICUM [Concomitant]
     Dates: start: 20090908, end: 20090915
  25. BENZYLPENICILLIN [Concomitant]
     Dates: start: 20090908, end: 20090916
  26. METOCLOPRAMIDE [Concomitant]
     Dates: start: 20090909, end: 20090920
  27. HYDROKORTISON [Concomitant]
     Route: 042
     Dates: start: 20090908, end: 20090925
  28. VENTOLIN [Concomitant]
     Dates: start: 20090911, end: 20090925
  29. ALDACTONE [Concomitant]
     Dates: start: 20090912, end: 20090925
  30. KETAMINE HCL [Concomitant]
     Dates: start: 20090911, end: 20090918
  31. INSULIN, FAST-ACTING [Concomitant]
     Dates: start: 20090901, end: 20090925
  32. DIGITOXIN INJ [Concomitant]
     Dates: start: 20090917, end: 20090925
  33. RAPIFEN [Concomitant]
     Dates: start: 20090908, end: 20090915
  34. AMLODIPINE [Concomitant]
     Dates: start: 20090917, end: 20090925
  35. FLUCONAZOLE [Concomitant]
     Dates: start: 20090920, end: 20090925
  36. AZITROMAX [Concomitant]
     Dates: start: 20090919, end: 20090921
  37. CIPROFLOXACIN [Concomitant]
     Dates: start: 20090908, end: 20090918
  38. ATROVENT [Concomitant]
     Dates: start: 20090911, end: 20090925

REACTIONS (5)
  - BLOOD CREATINE PHOSPHOKINASE INCREASED [None]
  - CHROMATURIA [None]
  - MYOGLOBIN BLOOD INCREASED [None]
  - PYREXIA [None]
  - RHABDOMYOLYSIS [None]
